FAERS Safety Report 4668485-3 (Version None)
Quarter: 2005Q2

REPORT INFORMATION
  Report Type: 
  Country: None (occurrence: None)
  Receive Date: 20050519
  Receipt Date: 20050506
  Transmission Date: 20051028
  Serious: Yes (Other)
  Sender: FDA-Public Use
  Company Number: 142054USA

PATIENT
  Age: 47 Year
  Sex: Female
  Weight: 56.246 kg

DRUGS (2)
  1. METHYLPREDNISOLONE ACETATE [Suspect]
     Indication: CORNEAL TRANSPLANT
     Dosage: 80 MILLIGRAM ONCE INTRAVENOUS (NOS)
     Route: 042
     Dates: start: 20050428, end: 20050428
  2. METHYLPREDNISOLONE ACETATE [Suspect]
     Indication: TRANSPLANT REJECTION
     Dosage: 80 MILLIGRAM ONCE INTRAVENOUS (NOS)
     Route: 042
     Dates: start: 20050428, end: 20050428

REACTIONS (6)
  - ACTIVITIES OF DAILY LIVING IMPAIRED [None]
  - DIARRHOEA [None]
  - INFLUENZA LIKE ILLNESS [None]
  - MUSCULAR WEAKNESS [None]
  - NAUSEA [None]
  - VOMITING [None]
